FAERS Safety Report 18129339 (Version 1)
Quarter: 2020Q3

REPORT INFORMATION
  Report Type: Spontaneous
  Country: US (occurrence: US)
  Receive Date: 20200807
  Receipt Date: 20200807
  Transmission Date: 20201103
  Serious: Yes (Hospitalization)
  Sender: FDA-Public Use
  Company Number: None

PATIENT
  Age: 74 Year
  Sex: Male
  Weight: 74 kg

DRUGS (2)
  1. LINEZOLID (LINEZOLID 600MG TAB) [Suspect]
     Active Substance: LINEZOLID
     Indication: STAPHYLOCOCCAL BACTERAEMIA
     Route: 048
     Dates: start: 20200707, end: 20200718
  2. CEFTAROLINE [Suspect]
     Active Substance: CEFTAROLINE

REACTIONS (3)
  - Blood creatinine increased [None]
  - Drug hypersensitivity [None]
  - Thrombocytopenia [None]

NARRATIVE: CASE EVENT DATE: 20200717
